FAERS Safety Report 5102023-6 (Version None)
Quarter: 2006Q3

REPORT INFORMATION
  Report Type: 
  Country: None (occurrence: None)
  Receive Date: 20060907
  Receipt Date: 20060829
  Transmission Date: 20061208
  Serious: Yes (Other)
  Sender: FDA-Public Use
  Company Number: 2006104996

PATIENT
  Age: 62 Year
  Sex: Female

DRUGS (1)
  1. BENADRYL [Suspect]
     Dosage: 40 TABLETS ONCE, ORAL
     Route: 048
     Dates: start: 20060829, end: 20060829

REACTIONS (4)
  - DISORIENTATION [None]
  - INCORRECT DOSE ADMINISTERED [None]
  - PULSE PRESSURE DECREASED [None]
  - SOMNOLENCE [None]
